FAERS Safety Report 17594505 (Version 4)
Quarter: 2020Q2

REPORT INFORMATION
  Report Type: Spontaneous
  Country: US (occurrence: US)
  Receive Date: 20200327
  Receipt Date: 20200528
  Transmission Date: 20200713
  Serious: Yes (Hospitalization, Other)
  Sender: FDA-Public Use
  Company Number: US-ACTELION-A-US2020-203612

PATIENT
  Sex: Female
  Weight: 87.08 kg

DRUGS (3)
  1. REMODULIN [Concomitant]
     Active Substance: TREPROSTINIL
  2. OPSUMIT [Suspect]
     Active Substance: MACITENTAN
     Indication: PULMONARY HYPERTENSION
     Dosage: 10 MG, QD
     Route: 048
  3. TADALAFIL. [Concomitant]
     Active Substance: TADALAFIL
     Dosage: UNK

REACTIONS (7)
  - Haemoglobin decreased [Unknown]
  - Mixed connective tissue disease [Unknown]
  - Cerebral haemorrhage [Unknown]
  - Head discomfort [Unknown]
  - Hospitalisation [Unknown]
  - Cardiac failure acute [Unknown]
  - Brain operation [Unknown]
